FAERS Safety Report 8878849 (Version 1)
Quarter: 2012Q4

REPORT INFORMATION
  Report Type: 
  Country: US (occurrence: US)
  Receive Date: 20121026
  Receipt Date: 20121026
  Transmission Date: 20130627
  Serious: Yes (Hospitalization, Other)
  Sender: FDA-Public Use
  Company Number: US-EISAI INC-E2080-00557-SPO-US

PATIENT
  Age: 15 Year
  Sex: Male
  Weight: 54.5 kg

DRUGS (4)
  1. BANZEL [Suspect]
     Indication: SEIZURES
     Dosage: unknown
     Route: 048
     Dates: start: 201002
  2. BANZEL [Suspect]
     Dosage: titrated to 1200 mg
     Route: 048
     Dates: end: 20121012
  3. BANZEL [Suspect]
     Dosage: 600 mg
     Route: 048
     Dates: start: 20121013, end: 20121014
  4. BANZEL [Suspect]
     Dosage: 1200 mg
     Route: 048
     Dates: start: 20121015

REACTIONS (4)
  - Psychotic disorder [Not Recovered/Not Resolved]
  - Atonic seizures [Unknown]
  - Abnormal behaviour [Recovering/Resolving]
  - Insomnia [Unknown]
